FAERS Safety Report 7589747-6 (Version None)
Quarter: 2011Q3

REPORT INFORMATION
  Report Type: 
  Country: None (occurrence: None)
  Receive Date: 20110705
  Receipt Date: 20110628
  Transmission Date: 20111222
  Serious: Yes (Death, Hospitalization)
  Sender: FDA-Public Use
  Company Number: US-GILEAD-2011-0039597

PATIENT
  Sex: Female
  Weight: 68.1 kg

DRUGS (8)
  1. COUMADIN [Concomitant]
  2. REVATIO [Concomitant]
  3. AMBIEN [Concomitant]
  4. MAXZIDE [Concomitant]
  5. ATRIPLA [Concomitant]
  6. LETAIRIS [Suspect]
     Indication: PULMONARY HYPERTENSION
     Route: 048
     Dates: start: 20100428, end: 20110501
  7. LETAIRIS [Suspect]
     Indication: HIV INFECTION
  8. XANAX [Concomitant]

REACTIONS (3)
  - ENTERITIS [None]
  - PULMONARY HYPERTENSION [None]
  - RESPIRATORY FAILURE [None]
